FAERS Safety Report 8859346 (Version 2)
Quarter: 2012Q4

REPORT INFORMATION
  Report Type: 
  Country: US (occurrence: US)
  Receive Date: 20121024
  Receipt Date: 20121129
  Transmission Date: 20130627
  Serious: No
  Sender: FDA-Public Use
  Company Number: US-ASTRAZENECA-2012SE04170

PATIENT
  Age: 63 Year
  Sex: Female

DRUGS (4)
  1. TOPROL XL [Suspect]
     Route: 048
  2. TOPROL XL [Interacting]
     Route: 048
  3. CELONTIN [Interacting]
     Route: 065
  4. DIOVAN [Concomitant]

REACTIONS (3)
  - Drug interaction [Unknown]
  - Feeling abnormal [Unknown]
  - Blood pressure abnormal [Unknown]
